FAERS Safety Report 5219070-6 (Version None)
Quarter: 2007Q1

REPORT INFORMATION
  Report Type: 
  Country: None (occurrence: None)
  Receive Date: 20070124
  Receipt Date: 20070124
  Transmission Date: 20070707
  Serious: Yes (Hospitalization)
  Sender: FDA-Public Use
  Company Number: None

PATIENT
  Sex: Female
  Weight: 63.3 kg

DRUGS (5)
  1. DOXORUBICIN HYDROCHLORIDE [Suspect]
     Dosage: 126 MG
  2. METHOTREXATE [Suspect]
     Dosage: 15 MG
  3. PEG-L-ASPARAGINASE (K-H) [Suspect]
     Dosage: 4225 IU
  4. VINCRISTINE SULFATE [Suspect]
     Dosage: 4 MG
  5. DEXAMETHASONE TAB [Suspect]
     Dosage: 112 MG

REACTIONS (16)
  - CARDIAC ARREST [None]
  - CARDIAC FAILURE [None]
  - COMA [None]
  - COUGH [None]
  - DISSEMINATED INTRAVASCULAR COAGULATION [None]
  - HYPOTENSION [None]
  - METABOLIC ACIDOSIS [None]
  - MULTI-ORGAN FAILURE [None]
  - MYDRIASIS [None]
  - NEUROLOGICAL SYMPTOM [None]
  - RENAL FAILURE [None]
  - RENAL TUBULAR NECROSIS [None]
  - SEPTIC SHOCK [None]
  - STAPHYLOCOCCAL INFECTION [None]
  - SUPRAVENTRICULAR TACHYCARDIA [None]
  - VENTRICULAR TACHYCARDIA [None]
